FAERS Safety Report 9266663 (Version 1)
Quarter: 2013Q2

REPORT INFORMATION
  Report Type: Spontaneous
  Country: US (occurrence: US)
  Receive Date: 20130502
  Receipt Date: 20130502
  Transmission Date: 20140414
  Serious: No
  Sender: FDA-Public Use
  Company Number: US-TEVA-402339USA

PATIENT
  Age: 78 Year
  Sex: Female

DRUGS (1)
  1. QNASL [Suspect]
     Route: 045
     Dates: start: 201304

REACTIONS (7)
  - Asthenia [Unknown]
  - Nausea [Unknown]
  - Dizziness [Unknown]
  - Tinnitus [Unknown]
  - Headache [Unknown]
  - Insomnia [Unknown]
  - Nasal discomfort [Recovered/Resolved]
